FAERS Safety Report 6982107-8 (Version None)
Quarter: 2010Q3

REPORT INFORMATION
  Report Type: 
  Country: None (occurrence: None)
  Receive Date: 20100914
  Receipt Date: 20091202
  Transmission Date: 20110219
  Serious: No
  Sender: FDA-Public Use
  Company Number: US-PFIZER INC-2009306727

PATIENT
  Sex: Female
  Weight: 79.4 kg

DRUGS (3)
  1. LYRICA [Suspect]
     Indication: NEUROPATHY PERIPHERAL
     Dosage: 50 MG, 1X/DAY
     Dates: start: 20091201
  2. LEXAPRO [Concomitant]
     Dosage: 5 MG, UNK
  3. PREVACID [Concomitant]
     Dosage: UNK

REACTIONS (1)
  - INSOMNIA [None]
